FAERS Safety Report 4897503-2 (Version None)
Quarter: 2006Q1

REPORT INFORMATION
  Report Type: 
  Country: None (occurrence: None)
  Receive Date: 20060130
  Receipt Date: 20060130
  Transmission Date: 20060701
  Serious: Yes (Other)
  Sender: FDA-Public Use
  Company Number: None

PATIENT
  Sex: Female

DRUGS (2)
  1. LEVAQUIN [Suspect]
     Indication: CHRONIC OBSTRUCTIVE PULMONARY DISEASE
     Dosage: 750 MG Q DAY PO
     Route: 048
     Dates: start: 20060112, end: 20060116
  2. LEVAQUIN [Suspect]
     Indication: CONDITION AGGRAVATED
     Dosage: 750 MG Q DAY PO
     Route: 048
     Dates: start: 20060112, end: 20060116

REACTIONS (2)
  - DIFFICULTY IN WALKING [None]
  - TENDONITIS [None]
